FAERS Safety Report 9973186 (Version 2)
Quarter: 2014Q1

REPORT INFORMATION
  Report Type: Report from Study
  Country: US (occurrence: US)
  Receive Date: 20140306
  Receipt Date: 20140306
  Transmission Date: 20141002
  Serious: Yes (Hospitalization)
  Sender: FDA-Public Use
  Company Number: US-ABBVIE-13P-163-1131716-00

PATIENT
  Age: 74 Year
  Sex: Female
  Weight: 90.8 kg

DRUGS (15)
  1. HUMIRA [Suspect]
     Indication: CROHN^S DISEASE
  2. SIMVASTATIN [Concomitant]
     Indication: BLOOD CHOLESTEROL INCREASED
     Dosage: 40 MG QHS
  3. PROLIA [Concomitant]
     Indication: BONE DISORDER
  4. CYMBALTA [Concomitant]
     Indication: PAIN
  5. AMITRIPTYLINE [Concomitant]
     Indication: PAIN
  6. METOPROLOL [Concomitant]
     Indication: HYPERTENSION
  7. DIPHENOXYLATE [Concomitant]
     Indication: DIARRHOEA
  8. VITAMIN D [Concomitant]
     Indication: PRODUCT USED FOR UNKNOWN INDICATION
  9. MULTIVITAMIN [Concomitant]
     Indication: PRODUCT USED FOR UNKNOWN INDICATION
  10. OMEGA 3 [Concomitant]
     Indication: PRODUCT USED FOR UNKNOWN INDICATION
  11. CALCIUM [Concomitant]
     Indication: PRODUCT USED FOR UNKNOWN INDICATION
  12. PANTOPRAZOLE [Concomitant]
     Indication: ULCER
  13. OXYBUTYNIN [Concomitant]
     Indication: INCONTINENCE
  14. HYDROCODONE [Concomitant]
     Indication: PAIN
     Dosage: 5/35MG Q6H PRN
  15. LOMOTIL [Concomitant]
     Indication: PRODUCT USED FOR UNKNOWN INDICATION

REACTIONS (5)
  - Pneumonia [Not Recovered/Not Resolved]
  - Colonoscopy abnormal [Not Recovered/Not Resolved]
  - Rectal haemorrhage [Recovering/Resolving]
  - Rectal discharge [Recovering/Resolving]
  - Bowel movement irregularity [Recovering/Resolving]
